FAERS Safety Report 6381413-8 (Version None)
Quarter: 2009Q3

REPORT INFORMATION
  Report Type: 
  Country: None (occurrence: None)
  Receive Date: 20090929
  Receipt Date: 20090907
  Transmission Date: 20100115
  Serious: Yes (Death)
  Sender: FDA-Public Use
  Company Number: NO-GENENTECH-273757

PATIENT
  Sex: Female

DRUGS (4)
  1. BEVACIZUMAB [Suspect]
     Indication: OVARIAN EPITHELIAL CANCER
     Dosage: UNK
     Route: 042
     Dates: start: 20080716, end: 20080805
  2. CARBOPLATIN [Suspect]
     Indication: OVARIAN EPITHELIAL CANCER
     Dosage: 510 UNK, UNK
     Route: 042
     Dates: start: 20080716
  3. PACLITAXEL [Suspect]
     Indication: OVARIAN EPITHELIAL CANCER
     Dosage: 250 UNK, UNK
     Route: 042
     Dates: start: 20080716
  4. DOXORUBICIN HCL [Suspect]
     Indication: DRUG USE FOR UNKNOWN INDICATION
     Dosage: 510 UNK, UNK
     Route: 042
     Dates: start: 20080917, end: 20081004

REACTIONS (5)
  - CEREBRAL ISCHAEMIA [None]
  - CEREBRAL THROMBOSIS [None]
  - DEATH [None]
  - SOMNOLENCE [None]
  - VISION BLURRED [None]
